FAERS Safety Report 24105783 (Version 3)
Quarter: 2024Q3

REPORT INFORMATION
  Report Type: Report from Study
  Country: DE (occurrence: DE)
  Receive Date: 20240717
  Receipt Date: 20240816
  Transmission Date: 20241016
  Serious: Yes (Death, Hospitalization, Other)
  Sender: BAXTER
  Company Number: DE-BAXTER-2024BAX021491

PATIENT
  Age: 51 Year
  Sex: Male

DRUGS (4)
  1. AMINO ACIDS\DEXTROSE\ELECTROLYTES NOS\SOYBEAN OIL [Suspect]
     Active Substance: AMINO ACIDS\DEXTROSE\ELECTROLYTES NOS\SOYBEAN OIL
     Indication: Parenteral nutrition
     Dosage: 1820 ML (MILLILITRE) AT AN UNSPECIFIED FREQUENCY ADMINISTERED VIA CENTRAL VENOUS ROUTE
     Route: 042
     Dates: start: 20240708, end: 20240808
  2. CERNEVIT [Suspect]
     Active Substance: VITAMINS
     Indication: Parenteral nutrition
     Dosage: 750 MG (MILLIGRAM) AT AN UNSPECIFIED FREQUENCY ADMINISTERED VIA CENTRAL VENOUS ROUTE
     Route: 042
     Dates: start: 20240708, end: 20240808
  3. ELECTROLYTES NOS\MINERALS [Suspect]
     Active Substance: ELECTROLYTES NOS\MINERALS
     Indication: Parenteral nutrition
     Dosage: (MANUFACTURER: LABORATOIRE AGUETTANT S.A.S.) 10 ML (MILLILITRE) AT AN UNSPECIFIED FREQUENCY ADMINIST
     Route: 042
     Dates: start: 20240708, end: 20240808
  4. UNSPECIFIED INGREDIENT [Suspect]
     Active Substance: UNSPECIFIED INGREDIENT
     Route: 065

REACTIONS (8)
  - Death [Fatal]
  - Ascites [Recovered/Resolved]
  - Abdominal pain [Recovered/Resolved]
  - General physical health deterioration [Recovered/Resolved]
  - Ascites [Not Recovered/Not Resolved]
  - Nausea [Recovered/Resolved]
  - Oedema peripheral [Not Recovered/Not Resolved]
  - Vomiting [Not Recovered/Not Resolved]

NARRATIVE: CASE EVENT DATE: 20240708
